FAERS Safety Report 5179574-1 (Version None)
Quarter: 2006Q4

REPORT INFORMATION
  Report Type: 
  Country: None (occurrence: None)
  Receive Date: 20061219
  Receipt Date: 20061213
  Transmission Date: 20070319
  Serious: Yes (Other)
  Sender: FDA-Public Use
  Company Number: CA-ROXANE LABORATORIES, INC-2006-DE-06671GD

PATIENT
  Age: 16 Year
  Sex: Male
  Weight: 60 kg

DRUGS (5)
  1. MORPHINE [Suspect]
     Indication: PROCEDURAL PAIN
     Dosage: AVERAGE DAILY USE WAS 120 MG (BOLUS OF 1.2 MG WITH A LOCKOUT OF 6 MIN)
  2. MORPHINE [Suspect]
     Dosage: BOLUS OF 1.8 MG EVERY 6 MIN
  3. ACETAMINOPHEN [Suspect]
     Indication: PROCEDURAL PAIN
     Route: 048
  4. IBUPROFEN [Suspect]
     Indication: PROCEDURAL PAIN
     Dosage: 1200 - 2400 MG
     Route: 048
  5. KETAMINE HCL [Suspect]
     Indication: PROCEDURAL PAIN
     Route: 042

REACTIONS (5)
  - DRUG INEFFECTIVE [None]
  - NAUSEA [None]
  - PRURITUS [None]
  - SEDATION [None]
  - URINARY RETENTION [None]
